FAERS Safety Report 15057739 (Version 1)
Quarter: 2018Q2

REPORT INFORMATION
  Report Type: Spontaneous
  Country: ES (occurrence: ES)
  Receive Date: 20180625
  Receipt Date: 20180625
  Transmission Date: 20180711
  Serious: Yes (Death)
  Sender: FDA-Public Use
  Company Number: ES-NAPPMUNDI-GBR-2018-0056832

PATIENT
  Age: 59 Year
  Sex: Male

DRUGS (2)
  1. MST CONTINUS [Suspect]
     Active Substance: MORPHINE SULFATE
     Indication: CANCER PAIN
     Dosage: 30 MG, Q12H (PARA POSTERIORMENTE 100 MG/12 HORAS AFTER)(AFTER THAT 100MG/12 HOURS) (STRENGHT 30MG)
     Route: 048
     Dates: start: 20170123
  2. OXYCONTIN [Suspect]
     Active Substance: OXYCODONE HYDROCHLORIDE
     Indication: CANCER PAIN
     Dosage: 10 MG, Q12H (DE INICIO, INITIALLY) (STRENGHT 10MG)
     Route: 048
     Dates: start: 20171219

REACTIONS (1)
  - Neurotoxicity [Fatal]

NARRATIVE: CASE EVENT DATE: 20180129
